FAERS Safety Report 9800017 (Version 2)
Quarter: 2014Q1

REPORT INFORMATION
  Report Type: Spontaneous
  Country: US (occurrence: US)
  Receive Date: 20140106
  Receipt Date: 20140106
  Transmission Date: 20141002
  Serious: Yes (Other)
  Sender: FDA-Public Use
  Company Number: US-GILEAD-2010-0030948

PATIENT
  Age: 84 Year
  Sex: Female
  Weight: 51.26 kg

DRUGS (12)
  1. LETAIRIS [Suspect]
     Indication: PULMONARY ARTERIAL HYPERTENSION
     Route: 048
     Dates: start: 20100420, end: 20100713
  2. ASPIRIN [Concomitant]
  3. FUROSEMIDE [Concomitant]
  4. AMLODIPINE [Concomitant]
  5. TRIAMTERENE/HCTZ [Concomitant]
  6. IMDUR [Concomitant]
  7. LIPITOR [Concomitant]
  8. VENTOLIN HFA [Concomitant]
  9. MAXIDEX [Concomitant]
  10. CALCIUM [Concomitant]
  11. KLOR-CON [Concomitant]
  12. PINDOLOL [Concomitant]

REACTIONS (2)
  - Transaminases increased [Recovering/Resolving]
  - Liver function test abnormal [Recovering/Resolving]
